FAERS Safety Report 6653378-2 (Version None)
Quarter: 2010Q1

REPORT INFORMATION
  Report Type: 
  Country: None (occurrence: None)
  Receive Date: 20100326
  Receipt Date: 20100316
  Transmission Date: 20100710
  Serious: Yes (Other)
  Sender: FDA-Public Use
  Company Number: PHHY2010JP15727

PATIENT

DRUGS (2)
  1. ZOMETA [Suspect]
     Indication: METASTASES TO BONE
     Dosage: 4 MG, UNK
     Route: 042
     Dates: start: 20080801
  2. BENET [Suspect]
     Indication: METASTASES TO BONE
     Dosage: 2.5 MG, UNK
     Route: 048
     Dates: start: 20050701, end: 20080701

REACTIONS (4)
  - DEBRIDEMENT [None]
  - OPEN WOUND [None]
  - OSTEONECROSIS [None]
  - TOOTH EXTRACTION [None]
